FAERS Safety Report 16937632 (Version 2)
Quarter: 2020Q1

REPORT INFORMATION
  Report Type: Spontaneous
  Country: GB (occurrence: GB)
  Receive Date: 20191018
  Receipt Date: 20200226
  Transmission Date: 20200409
  Serious: Yes (Death, Hospitalization, Other)
  Sender: FDA-Public Use
  Company Number: GB-MYLANLABS-2019M1098600

PATIENT
  Age: 57 Year
  Sex: Male

DRUGS (5)
  1. ZARONTIN [Concomitant]
     Active Substance: ETHOSUXIMIDE
     Dosage: 780 MILLIGRAM, QD
  2. RISPERIDONE. [Suspect]
     Active Substance: RISPERIDONE
     Indication: SEIZURE
     Dosage: 12 MILLIGRAM, QD
     Dates: start: 2004, end: 201908
  3. RISPERIDONE. [Suspect]
     Active Substance: RISPERIDONE
     Indication: PRODUCT USED FOR UNKNOWN INDICATION
     Dosage: 1500 MICROGRAM
     Dates: start: 2019
  4. AMLODIPINE [Concomitant]
     Active Substance: AMLODIPINE BESYLATE
     Indication: HYPERTENSION
     Dosage: UNK
  5. RAMIPRIL. [Concomitant]
     Active Substance: RAMIPRIL
     Indication: HYPERTENSION
     Dosage: UNK

REACTIONS (13)
  - Seizure [Unknown]
  - Dyskinesia [Unknown]
  - Colon cancer [Fatal]
  - Somnolence [Unknown]
  - Gynaecomastia [Unknown]
  - Pollakiuria [Unknown]
  - Lung neoplasm malignant [Unknown]
  - Feeling hot [Unknown]
  - Abnormal weight gain [Unknown]
  - Dyspnoea [Unknown]
  - Rash pruritic [Not Recovered/Not Resolved]
  - Hyperhidrosis [Unknown]
  - Insomnia [Unknown]

NARRATIVE: CASE EVENT DATE: 2017
